FAERS Safety Report 10707421 (Version 1)
Quarter: 2015Q1

REPORT INFORMATION
  Report Type: Spontaneous
  Country: US (occurrence: None)
  Receive Date: 20150112
  Receipt Date: 20150112
  Transmission Date: 20150721
  Serious: Yes (Other)
  Sender: FDA-Public Use
  Company Number: None

PATIENT
  Age: 70 Year
  Sex: Male

DRUGS (1)
  1. ZYTIGA [Suspect]
     Active Substance: ABIRATERONE ACETATE
     Indication: PROSTATE CANCER
     Dosage: 4 TABLETS DAILY ORALLY(1000MG)
     Route: 048
     Dates: start: 20140607, end: 20150108

REACTIONS (2)
  - Prostate cancer metastatic [None]
  - Disease progression [None]

NARRATIVE: CASE EVENT DATE: 20150108
